FAERS Safety Report 13908768 (Version 2)
Quarter: 2017Q3

REPORT INFORMATION
  Report Type: Spontaneous
  Country: US (occurrence: US)
  Receive Date: 20170827
  Receipt Date: 20170922
  Transmission Date: 20171127
  Serious: No
  Sender: FDA-Public Use
  Company Number: PHEH2017US026189

PATIENT
  Age: 65 Year
  Sex: Female
  Weight: 55.33 kg

DRUGS (1)
  1. HYDROCORTISONE. [Suspect]
     Active Substance: HYDROCORTISONE
     Indication: SKIN ULCER
     Dosage: UNK, BID
     Route: 061
     Dates: start: 20170804, end: 20170806

REACTIONS (2)
  - Post-traumatic stress disorder [Recovering/Resolving]
  - Condition aggravated [Recovering/Resolving]

NARRATIVE: CASE EVENT DATE: 20170804
